FAERS Safety Report 14798665 (Version 1)
Quarter: 2018Q2

REPORT INFORMATION
  Report Type: Spontaneous
  Country: US (occurrence: US)
  Receive Date: 20180415
  Receipt Date: 20180415
  Transmission Date: 20180711
  Serious: Yes (Life-Threatening, Hospitalization, Disabling, Other)
  Sender: FDA-Public Use
  Company Number: None

PATIENT
  Age: 33 Year
  Sex: Female
  Weight: 83.91 kg

DRUGS (1)
  1. NEXPLANON [Suspect]
     Active Substance: ETONOGESTREL

REACTIONS (15)
  - Amnesia [None]
  - Panic attack [None]
  - Pain in extremity [None]
  - Weight increased [None]
  - Depression [None]
  - Alopecia [None]
  - Vision blurred [None]
  - Headache [None]
  - Breast mass [None]
  - Quality of life decreased [None]
  - Migraine [None]
  - Weight abnormal [None]
  - Tinnitus [None]
  - Anxiety [None]
  - Emotional distress [None]

NARRATIVE: CASE EVENT DATE: 20170808
